FAERS Safety Report 14598852 (Version 1)
Quarter: 2018Q1

REPORT INFORMATION
  Report Type: Spontaneous
  Country: US (occurrence: US)
  Receive Date: 20180302
  Receipt Date: 20180302
  Transmission Date: 20180509
  Serious: No
  Sender: FDA-Public Use
  Company Number: None

PATIENT
  Sex: Male

DRUGS (2)
  1. PRAVACHOL [Suspect]
     Active Substance: PRAVASTATIN SODIUM
  2. LIPITOR [Suspect]
     Active Substance: ATORVASTATIN CALCIUM

REACTIONS (1)
  - Myalgia [None]
